FAERS Safety Report 5504684-6 (Version None)
Quarter: 2007Q4

REPORT INFORMATION
  Report Type: 
  Country: None (occurrence: None)
  Receive Date: 20071031
  Receipt Date: 20071017
  Transmission Date: 20080405
  Serious: Yes (Death, Other)
  Sender: FDA-Public Use
  Company Number: 2007JP004821

PATIENT
  Age: 59 Year
  Sex: Female

DRUGS (4)
  1. PROGRAF [Suspect]
     Indication: CORD BLOOD TRANSPLANT THERAPY
  2. METHOTREXATE [Concomitant]
  3. GRANULOCYTE MACROPHAGE COLONY STIM FACTOR (GRANULOCYTE MACROPHAGE COLO [Concomitant]
  4. GRANULOCYTE COLONY STIMULATING FACTOR (GRANULOCYTE COLONY STIMULATING [Concomitant]

REACTIONS (4)
  - ACUTE MYELOID LEUKAEMIA [None]
  - CYTOMEGALOVIRUS INFECTION [None]
  - MYELODYSPLASTIC SYNDROME [None]
  - PANCYTOPENIA [None]
